FAERS Safety Report 7732971-X (Version None)
Quarter: 2011Q3

REPORT INFORMATION
  Report Type: 
  Country: None (occurrence: None)
  Receive Date: 20110907
  Receipt Date: 20110830
  Transmission Date: 20111222
  Serious: Yes (Hospitalization)
  Sender: FDA-Public Use
  Company Number: PHEH2011US02873

PATIENT
  Sex: Male

DRUGS (1)
  1. EXELON [Suspect]
     Dosage: 9.5 MG, DAILY
     Route: 062

REACTIONS (7)
  - DEHYDRATION [None]
  - DIZZINESS [None]
  - VOMITING [None]
  - MALAISE [None]
  - NAUSEA [None]
  - HYPERHIDROSIS [None]
  - FATIGUE [None]
